FAERS Safety Report 23032488 (Version 2)
Quarter: 2023Q4

REPORT INFORMATION
  Report Type: Spontaneous
  Country: US (occurrence: US)
  Receive Date: 20231005
  Receipt Date: 20231211
  Transmission Date: 20240110
  Serious: Yes (Hospitalization)
  Sender: FDA-Public Use
  Company Number: US-BRISTOL-MYERS SQUIBB COMPANY-2023-138736

PATIENT
  Age: 65 Year
  Sex: Male
  Weight: 76.66 kg

DRUGS (2)
  1. REVLIMID [Suspect]
     Active Substance: LENALIDOMIDE
     Indication: Plasma cell myeloma
     Dosage: 3WKSON,1WKOFF
     Route: 048
  2. REVLIMID [Suspect]
     Active Substance: LENALIDOMIDE
     Dosage: 3WKSON,1WKOFF
     Route: 048

REACTIONS (8)
  - Insomnia [Recovered/Resolved]
  - Inflammation [Recovered/Resolved]
  - Gait disturbance [Recovered/Resolved]
  - Blood sodium decreased [Recovered/Resolved]
  - Haemoglobin decreased [Recovered/Resolved]
  - Decreased appetite [Recovered/Resolved]
  - Fatigue [Recovered/Resolved]
  - Hyperaesthesia [Recovered/Resolved]

NARRATIVE: CASE EVENT DATE: 20230701
